FAERS Safety Report 6129984-0 (Version None)
Quarter: 2009Q1

REPORT INFORMATION
  Report Type: 
  Country: None (occurrence: None)
  Receive Date: 20090324
  Receipt Date: 20090320
  Transmission Date: 20090719
  Serious: Yes (Death, Hospitalization, Other)
  Sender: FDA-Public Use
  Company Number: FR-BAYER-200828484GPV

PATIENT
  Age: 63 Year
  Sex: Male
  Weight: 66 kg

DRUGS (3)
  1. MABCAMPATH [Suspect]
     Indication: B-CELL SMALL LYMPHOCYTIC LYMPHOMA RECURRENT
     Dosage: 5 CYCLES
     Route: 058
     Dates: start: 20080312, end: 20080813
  2. FLUDARA [Suspect]
     Indication: B-CELL SMALL LYMPHOCYTIC LYMPHOMA RECURRENT
     Dosage: 5 CYCLES
     Route: 048
     Dates: start: 20080312, end: 20080813
  3. CYCLOPHOSPHAMIDE [Suspect]
     Indication: B-CELL SMALL LYMPHOCYTIC LYMPHOMA RECURRENT
     Dosage: 5 CYCLES
     Route: 048
     Dates: start: 20080312, end: 20080813

REACTIONS (12)
  - ACUTE HEPATIC FAILURE [None]
  - CARDIAC FAILURE CONGESTIVE [None]
  - CD4 LYMPHOCYTES DECREASED [None]
  - CHRONIC LYMPHOCYTIC LEUKAEMIA TRANSFORMATION [None]
  - CYTOMEGALOVIRUS INFECTION [None]
  - LEUKOPENIA [None]
  - LYMPHOPENIA [None]
  - METABOLIC ACIDOSIS [None]
  - NEUTROPENIA [None]
  - RENAL FAILURE [None]
  - RESPIRATORY FAILURE [None]
  - SEPTIC SHOCK [None]
